FAERS Safety Report 10238898 (Version 1)
Quarter: 2014Q2

REPORT INFORMATION
  Report Type: Spontaneous
  Country: US (occurrence: None)
  Receive Date: 20140613
  Receipt Date: 20140613
  Transmission Date: 20141212
  Serious: Yes (Other)
  Sender: FDA-Public Use
  Company Number: None

PATIENT
  Age: 49 Year
  Sex: Female
  Weight: 44.45 kg

DRUGS (1)
  1. SYNTHROID 100 MCG [Suspect]
     Indication: BASEDOW^S DISEASE
     Route: 048

REACTIONS (3)
  - Urticaria [None]
  - No therapeutic response [None]
  - Reaction to azo-dyes [None]
